FAERS Safety Report 18086603 (Version 1)
Quarter: 2020Q3

REPORT INFORMATION
  Report Type: Spontaneous
  Country: US (occurrence: US)
  Receive Date: 20200729
  Receipt Date: 20200729
  Transmission Date: 20201103
  Serious: Yes (Hospitalization)
  Sender: FDA-Public Use
  Company Number: None

PATIENT
  Age: 4 Year
  Sex: Female
  Weight: 17.3 kg

DRUGS (5)
  1. METHOTREXATE. [Suspect]
     Active Substance: METHOTREXATE
     Dates: end: 20200724
  2. ONCASPAR [Suspect]
     Active Substance: PEGASPARGASE
     Dates: end: 20200629
  3. CYTARABINE. [Suspect]
     Active Substance: CYTARABINE
     Dates: end: 20200625
  4. VINCRISTINE SULFATE. [Suspect]
     Active Substance: VINCRISTINE SULFATE
     Dates: end: 20200710
  5. DEXAMETHASONE. [Suspect]
     Active Substance: DEXAMETHASONE
     Dates: end: 20200717

REACTIONS (9)
  - Abdominal wall oedema [None]
  - Hepatomegaly [None]
  - Hepatic enzyme increased [None]
  - Prothrombin time prolonged [None]
  - Pallor [None]
  - Drug-induced liver injury [None]
  - Acute hepatic failure [None]
  - Activated partial thromboplastin time prolonged [None]
  - Ocular icterus [None]
